FAERS Safety Report 17198125 (Version 1)
Quarter: 2019Q4

REPORT INFORMATION
  Report Type: Spontaneous
  Country: GB (occurrence: GB)
  Receive Date: 20191225
  Receipt Date: 20191225
  Transmission Date: 20200122
  Serious: Yes (Other)
  Sender: FDA-Public Use
  Company Number: GB-ACCORD-166666

PATIENT
  Age: 51 Year
  Sex: Female
  Weight: 92.07 kg

DRUGS (4)
  1. MONTELUKAST [Suspect]
     Active Substance: MONTELUKAST SODIUM
     Indication: ASTHMA
     Route: 048
     Dates: start: 201903
  2. IRON [Concomitant]
     Active Substance: IRON
  3. SUMATRIPTAN. [Concomitant]
     Active Substance: SUMATRIPTAN
  4. CODEINE [Concomitant]
     Active Substance: CODEINE

REACTIONS (5)
  - Fear of death [Recovered/Resolved]
  - Agitation [Recovered/Resolved]
  - Morbid thoughts [Recovered/Resolved]
  - Major depression [Recovered/Resolved]
  - Insomnia [Recovered/Resolved]

NARRATIVE: CASE EVENT DATE: 201904
